FAERS Safety Report 9084782 (Version 1)
Quarter: 2013Q1

REPORT INFORMATION
  Report Type: Report from Study
  Country: US (occurrence: US)
  Receive Date: 20130131
  Receipt Date: 20130131
  Transmission Date: 20140127
  Serious: Yes (Congenital Anomaly, Other)
  Sender: FDA-Public Use
  Company Number: US-GILEAD-2013-0068507

PATIENT
  Sex: Female

DRUGS (6)
  1. EMTRICITABINE/TENOFOVIR DISOPROXIL FUMARATE [Suspect]
     Indication: HIV INFECTION
     Dosage: 1 DF, QD
     Route: 064
     Dates: start: 20110618, end: 20120315
  2. FOSAMPRENAVIR [Suspect]
     Indication: HIV INFECTION
     Dosage: 1400 MG, QD
     Route: 064
     Dates: start: 20110618, end: 20120315
  3. RITONAVIR [Suspect]
     Indication: HIV INFECTION
     Dosage: 100 MG, QD
     Route: 064
     Dates: start: 20110618, end: 20120315
  4. ZIDOVUDINE [Suspect]
     Indication: HIV INFECTION
     Dosage: 600 MG, QD
     Route: 064
     Dates: start: 20111202, end: 20120315
  5. ZIDOVUDINE [Suspect]
     Dosage: 980 MG, QD
     Route: 064
     Dates: start: 20120315, end: 20120315
  6. KEPPRA [Suspect]
     Indication: PRODUCT USED FOR UNKNOWN INDICATION
     Dosage: 500 MG, BID
     Route: 064
     Dates: start: 2011, end: 20120315

REACTIONS (1)
  - Polydactyly [Unknown]
